FAERS Safety Report 6717270-7 (Version None)
Quarter: 2010Q2

REPORT INFORMATION
  Report Type: 
  Country: None (occurrence: None)
  Receive Date: 20100510
  Receipt Date: 20100429
  Transmission Date: 20101027
  Serious: Yes (Hospitalization)
  Sender: FDA-Public Use
  Company Number: ES-MPIJNJ-2010-02433

PATIENT

DRUGS (7)
  1. VELCADE [Suspect]
     Indication: MULTIPLE MYELOMA
     Dosage: 1.3 MG/M2, UNK
     Route: 042
     Dates: start: 20100322, end: 20100427
  2. MELPHALAN HYDROCHLORIDE [Concomitant]
     Indication: MULTIPLE MYELOMA
     Dosage: UNK
     Dates: start: 20100320, end: 20100427
  3. PREDNISONE [Concomitant]
     Indication: MULTIPLE MYELOMA
     Dosage: UNK
     Dates: start: 20100320, end: 20100427
  4. ZOMETA [Concomitant]
     Indication: MULTIPLE MYELOMA
     Dosage: 1 DF, MONTHLY
     Dates: start: 20100313, end: 20100427
  5. CALCIUM SANDOZ FORTE D [Concomitant]
  6. ANTIHYPERTENSIVES [Concomitant]
     Indication: HYPERTENSION
  7. DRUG USED IN DIABETES [Concomitant]
     Indication: DIABETES MELLITUS
     Dosage: UNK

REACTIONS (2)
  - DERMATITIS EXFOLIATIVE [None]
  - RENAL FAILURE ACUTE [None]
